FAERS Safety Report 17636450 (Version 1)
Quarter: 2020Q2

REPORT INFORMATION
  Report Type: Spontaneous
  Country: US (occurrence: US)
  Receive Date: 20200407
  Receipt Date: 20200407
  Transmission Date: 20200713
  Serious: No
  Sender: FDA-Public Use
  Company Number: US-MYLANLABS-2020M1033018

PATIENT
  Sex: Female
  Weight: 91 kg

DRUGS (5)
  1. FENTANYL. [Suspect]
     Active Substance: FENTANYL
     Dosage: 275 MICROGRAM, Q3D (TWO 100 MCG PATCH AND ONE 75 MCG PATCH)
  2. FENTANYL. [Suspect]
     Active Substance: FENTANYL
     Dosage: 275 MICROGRAM, Q3D (TWO 100 MCG PATCH AND ONE 75 MCG PATCH)
  3. FENTANYL. [Suspect]
     Active Substance: FENTANYL
     Indication: LYME DISEASE
     Dosage: 1 DOSAGE FORM, Q3D
     Route: 062
  4. TRAMADOL. [Concomitant]
     Active Substance: TRAMADOL
     Dosage: UNK
  5. FENTANYL. [Suspect]
     Active Substance: FENTANYL
     Indication: LYME DISEASE
     Dosage: EVERY 3 DAYS
     Route: 062

REACTIONS (3)
  - Spinal pain [Recovered/Resolved]
  - Off label use [Recovered/Resolved]
  - Peripheral coldness [Recovered/Resolved]
